FAERS Safety Report 8359984-1 (Version None)
Quarter: 2012Q2

REPORT INFORMATION
  Report Type: 
  Country: None (occurrence: None)
  Receive Date: 20120515
  Receipt Date: 20120509
  Transmission Date: 20120825
  Serious: Yes (Hospitalization, Other)
  Sender: FDA-Public Use
  Company Number: PHHY2012AU033147

PATIENT
  Sex: Male
  Weight: 80 kg

DRUGS (5)
  1. TRANEXAMIC ACID [Concomitant]
     Dosage: 500 MG, BID
     Route: 048
     Dates: start: 20111101
  2. EXJADE [Suspect]
     Indication: IRON OVERLOAD
     Dosage: 1.5 G, DAILY
     Dates: start: 20120322, end: 20120330
  3. OXYCODONE HCL [Concomitant]
     Dosage: 20 MG, BID
     Route: 048
     Dates: start: 20110901
  4. PANTOPRAZOLE [Concomitant]
     Indication: GASTROOESOPHAGEAL REFLUX DISEASE
     Dosage: 40 MG, DAILY
     Route: 048
     Dates: start: 20050101
  5. ACETAMINOPHEN [Concomitant]

REACTIONS (5)
  - PYREXIA [None]
  - C-REACTIVE PROTEIN INCREASED [None]
  - RASH [None]
  - SERUM FERRITIN INCREASED [None]
  - VASCULITIS [None]
